FAERS Safety Report 14655522 (Version 1)
Quarter: 2018Q1

REPORT INFORMATION
  Report Type: Spontaneous
  Country: ES (occurrence: ES)
  Receive Date: 20180319
  Receipt Date: 20180319
  Transmission Date: 20180509
  Serious: Yes (Other)
  Sender: FDA-Public Use
  Company Number: ES-BAXTER-2018BAX009187

PATIENT
  Age: 49 Year
  Sex: Male

DRUGS (2)
  1. SUERO FISIOL?GICO BAXTER 9 MG/ML [Suspect]
     Active Substance: SODIUM CHLORIDE
     Indication: ECHOCARDIOGRAM
     Dosage: IN LEFT ARM
     Route: 042
  2. SUERO FISIOL?GICO BAXTER 9 MG/ML [Suspect]
     Active Substance: SODIUM CHLORIDE
     Indication: ULTRASOUND SCAN
     Dosage: IN RIGHT ARM
     Route: 042

REACTIONS (1)
  - Transient ischaemic attack [Recovered/Resolved]
